FAERS Safety Report 5523683-1 (Version None)
Quarter: 2007Q4

REPORT INFORMATION
  Report Type: 
  Country: None (occurrence: None)
  Receive Date: 20071121
  Receipt Date: 20071115
  Transmission Date: 20080405
  Serious: Yes (Other)
  Sender: FDA-Public Use
  Company Number: US-JNJFOC-20071106621

PATIENT
  Sex: Female

DRUGS (9)
  1. EXTRA STRENGTH TYLENOL [Suspect]
  2. EXTRA STRENGTH TYLENOL [Suspect]
     Indication: HEADACHE
  3. WELLBUTRIN [Concomitant]
  4. XANAX [Concomitant]
  5. KLONOPIN [Concomitant]
  6. CELEXA [Concomitant]
  7. ATARAX [Concomitant]
  8. RESTORIL [Concomitant]
  9. TRAZODONE HCL [Concomitant]

REACTIONS (3)
  - EXPIRED DRUG ADMINISTERED [None]
  - MEDICATION TAMPERING [None]
  - VOMITING [None]
